FAERS Safety Report 15131224 (Version 1)
Quarter: 2018Q3

REPORT INFORMATION
  Report Type: Spontaneous
  Country: US (occurrence: US)
  Receive Date: 20180615
  Receipt Date: 20180615
  Transmission Date: 20181010
  Serious: Yes (Death, Other)
  Sender: FDA-Public Use
  Company Number: None

PATIENT
  Age: 82 Year
  Sex: Female
  Weight: 65.25 kg

DRUGS (13)
  1. ASPIRIN. [Concomitant]
     Active Substance: ASPIRIN
  2. TARCEVA [Suspect]
     Active Substance: ERLOTINIB HYDROCHLORIDE
     Indication: LUNG NEOPLASM MALIGNANT
     Route: 048
     Dates: start: 20180523, end: 20180615
  3. ISOSORBIDE. [Concomitant]
     Active Substance: ISOSORBIDE
  4. HYDRALAZINE [Concomitant]
     Active Substance: HYDRALAZINE HYDROCHLORIDE
  5. BUMETANIDE. [Concomitant]
     Active Substance: BUMETANIDE
  6. ATORVASTATIN [Concomitant]
     Active Substance: ATORVASTATIN
  7. AMIODARONE [Concomitant]
     Active Substance: AMIODARONE
  8. POTASSIUM [Concomitant]
     Active Substance: POTASSIUM
  9. HUMALOG [Concomitant]
     Active Substance: INSULIN LISPRO
  10. CALCITRIOL. [Concomitant]
     Active Substance: CALCITRIOL
  11. ULORIC [Concomitant]
     Active Substance: FEBUXOSTAT
  12. CIPRODEX [Concomitant]
     Active Substance: CIPROFLOXACIN HYDROCHLORIDE\DEXAMETHASONE
  13. PENTOXIFYLLINE. [Concomitant]
     Active Substance: PENTOXIFYLLINE

REACTIONS (1)
  - Disease progression [None]
